FAERS Safety Report 9052919 (Version 3)
Quarter: 2013Q4

REPORT INFORMATION
  Report Type: Spontaneous
  Country: JP (occurrence: JP)
  Receive Date: 20130207
  Receipt Date: 20131031
  Transmission Date: 20140711
  Serious: Yes (Hospitalization, Other)
  Sender: FDA-Public Use
  Company Number: JP-GILEAD-2012-0066993

PATIENT
  Age: 48 Year
  Sex: Female

DRUGS (7)
  1. AMBRISENTAN [Suspect]
     Indication: PULMONARY ARTERIAL HYPERTENSION
     Dosage: 10 UNK, UNK
     Route: 048
     Dates: start: 20121126
  2. FLOLAN [Suspect]
     Indication: PRODUCT USED FOR UNKNOWN INDICATION
     Route: 042
     Dates: start: 20121207
  3. ADCIRCA [Concomitant]
     Indication: PULMONARY ARTERIAL HYPERTENSION
     Dosage: 40MG PER DAY
     Route: 048
     Dates: start: 20121213
  4. FUROSEMIDE [Concomitant]
     Indication: PULMONARY ARTERIAL HYPERTENSION
     Dosage: 20MG PER DAY
     Route: 048
     Dates: start: 20121213, end: 20130121
  5. ALDACTONE A [Concomitant]
     Indication: PULMONARY ARTERIAL HYPERTENSION
     Dosage: 25MG PER DAY
     Route: 048
     Dates: start: 20121213
  6. SELBEX [Concomitant]
     Indication: PROPHYLAXIS AGAINST GASTROINTESTINAL ULCER
     Dosage: 50MG THREE TIMES PER DAY
     Route: 048
     Dates: start: 20121215
  7. PARIET [Concomitant]
     Indication: PROPHYLAXIS AGAINST GASTROINTESTINAL ULCER
     Dosage: 10MG PER DAY
     Route: 048
     Dates: start: 20121208

REACTIONS (4)
  - Pain in jaw [Not Recovered/Not Resolved]
  - Otitis media [Not Recovered/Not Resolved]
  - Hypoacusis [Unknown]
  - Nasal congestion [Unknown]
